FAERS Safety Report 10442169 (Version 1)
Quarter: 2014Q3

REPORT INFORMATION
  Report Type: Spontaneous
  Country: US (occurrence: US)
  Receive Date: 20140909
  Receipt Date: 20140909
  Transmission Date: 20150326
  Serious: Yes (Death, Hospitalization)
  Sender: FDA-Public Use
  Company Number: US-ABBVIE-14P-163-1280347-00

PATIENT
  Age: 89 Year
  Sex: Male

DRUGS (1)
  1. LUPRON DEPOT [Suspect]
     Active Substance: LEUPROLIDE ACETATE
     Indication: PROSTATE CANCER

REACTIONS (9)
  - Device occlusion [Recovered/Resolved]
  - Fall [Recovered/Resolved]
  - Metastases to bone [Fatal]
  - Asthenia [Unknown]
  - Skull fracture [Recovered/Resolved]
  - Investigation [Unknown]
  - Blood iron decreased [Unknown]
  - Arthralgia [Unknown]
  - Prostate cancer [Fatal]

NARRATIVE: CASE EVENT DATE: 201210
